FAERS Safety Report 5094813-3 (Version None)
Quarter: 2006Q3

REPORT INFORMATION
  Report Type: 
  Country: None (occurrence: None)
  Receive Date: 20060830
  Receipt Date: 20060830
  Transmission Date: 20061208
  Serious: Yes (Hospitalization, Other)
  Sender: FDA-Public Use
  Company Number: None

PATIENT
  Age: 60 Year
  Sex: Male
  Weight: 95.2554 kg

DRUGS (8)
  1. TOSITUMOMAB        MCKESSON BIOSCIENCES [Suspect]
     Indication: NON-HODGKIN'S LYMPHOMA
     Dosage: 450 MG    TWO DOSES    IV BOLUS
     Route: 040
     Dates: start: 20010419, end: 20010426
  2. IODINE I-131  TOSITUMOMAB        MDS NORDION [Suspect]
     Indication: NON-HODGKIN'S LYMPHOMA
     Dosage: 35 MG/128.4 MCI    TWO DOSES    IV BOLUS
     Route: 040
     Dates: start: 20010419, end: 20010426
  3. TOPROL-XL [Concomitant]
  4. PLAVIX [Concomitant]
  5. PRAVACHOL [Concomitant]
  6. ALBUTEROL [Concomitant]
  7. MUCINEX [Concomitant]
  8. ASPIRIN [Concomitant]

REACTIONS (12)
  - ACUTE MYELOID LEUKAEMIA [None]
  - ANAEMIA [None]
  - ASTHENIA [None]
  - CHILLS [None]
  - DISEASE RECURRENCE [None]
  - EAR PAIN [None]
  - FEBRILE NEUTROPENIA [None]
  - HERPES VIRUS INFECTION [None]
  - LEUKOPENIA [None]
  - LYMPHOMA [None]
  - MYELODYSPLASTIC SYNDROME [None]
  - PNEUMONIA [None]
